FAERS Safety Report 7238996-5 (Version None)
Quarter: 2011Q1

REPORT INFORMATION
  Report Type: 
  Country: None (occurrence: None)
  Receive Date: 20110121
  Receipt Date: 20110117
  Transmission Date: 20110831
  Serious: Yes (Other)
  Sender: FDA-Public Use
  Company Number: US-PFIZER INC-2011011201

PATIENT
  Sex: Female
  Weight: 111.11 kg

DRUGS (7)
  1. SIMVASTATIN [Concomitant]
     Indication: BLOOD CHOLESTEROL ABNORMAL
     Dosage: UNK
     Dates: start: 20000101
  2. ADVAIR [Concomitant]
     Dosage: UNK, 2X/DAY
     Dates: start: 20000101
  3. ESTRADIOL [Concomitant]
     Indication: HOT FLUSH
     Dosage: UNK
     Dates: start: 20000101
  4. PAROXETINE [Concomitant]
     Indication: DEPRESSION
     Dosage: UNK
     Dates: start: 20000101
  5. CENTRUM SILVER [Concomitant]
     Dosage: UNK
     Dates: start: 20000101
  6. CHANTIX [Suspect]
     Indication: SMOKING CESSATION THERAPY
     Dosage: 1 MG, 2X/DAY
     Route: 048
     Dates: start: 20101001, end: 20100101
  7. FUROSEMIDE [Concomitant]
     Dosage: UNK
     Dates: start: 20000101

REACTIONS (4)
  - PSYCHIATRIC SYMPTOM [None]
  - SUICIDE ATTEMPT [None]
  - DEPRESSION [None]
  - INTENTIONAL OVERDOSE [None]
